FAERS Safety Report 8041450-4 (Version None)
Quarter: 2012Q1

REPORT INFORMATION
  Report Type: 
  Country: None (occurrence: None)
  Receive Date: 20120112
  Receipt Date: 20120109
  Transmission Date: 20120608
  Serious: Yes (Hospitalization, Disabling, Other)
  Sender: FDA-Public Use
  Company Number: US-PFIZER INC-2010080334

PATIENT
  Sex: Female

DRUGS (7)
  1. LEVODOPA [Concomitant]
     Dosage: UNK
     Dates: start: 20060101, end: 20090101
  2. SULFAMETHOXAZOLE AND TRIMETHOPRIM DOUBLE STRENGTH [Concomitant]
     Indication: BRONCHITIS
     Dosage: UNK
     Dates: start: 20070101, end: 20090101
  3. CHANTIX [Suspect]
     Indication: SMOKING CESSATION THERAPY
     Dosage: STARTER PACK
     Dates: start: 20080718, end: 20080729
  4. ALPRAZOLAM [Concomitant]
     Indication: ANXIETY
     Dosage: UNK
     Dates: start: 20060101, end: 20090101
  5. ACETAMINOPHEN AND OXYCODONE HCL [Concomitant]
     Indication: PAIN MANAGEMENT
     Dosage: UNK
     Dates: start: 20060101, end: 20090101
  6. CARBIDOPA [Concomitant]
     Dosage: UNK
     Dates: start: 20060101, end: 20090101
  7. CARISOPRODOL [Concomitant]
     Indication: MUSCLE RELAXANT THERAPY
     Dosage: UNK
     Dates: start: 20070101, end: 20090101

REACTIONS (10)
  - NIGHTMARE [None]
  - MENISCUS LESION [None]
  - DISORIENTATION [None]
  - PATELLOFEMORAL PAIN SYNDROME [None]
  - LOOSE BODY IN JOINT [None]
  - BACK INJURY [None]
  - MULTIPLE INJURIES [None]
  - JOINT INJURY [None]
  - NECK INJURY [None]
  - FALL [None]
